FAERS Safety Report 4819430-9 (Version None)
Quarter: 2005Q4

REPORT INFORMATION
  Report Type: 
  Country: None (occurrence: None)
  Receive Date: 20051103
  Receipt Date: 20051025
  Transmission Date: 20060501
  Serious: Yes (Death, Life-Threatening)
  Sender: FDA-Public Use
  Company Number: GB-JNJFOC-20050606265

PATIENT
  Age: 16 Year
  Sex: Male
  Weight: 70.5 kg

DRUGS (5)
  1. RISPERDAL [Suspect]
     Indication: ABNORMAL BEHAVIOUR
     Route: 048
  2. TEGRETOL [Suspect]
     Route: 048
  3. CLOBAZAM [Suspect]
     Route: 048
  4. TOPIRAMATE [Concomitant]
     Indication: EPILEPSY
     Route: 048
     Dates: start: 20050331, end: 20050425
  5. TOPIRAMATE [Concomitant]
     Indication: AGITATION
     Route: 048
     Dates: start: 20050331, end: 20050425

REACTIONS (1)
  - EPILEPSY [None]
